FAERS Safety Report 14657962 (Version 23)
Quarter: 2022Q3

REPORT INFORMATION
  Report Type: Spontaneous
  Country: GB (occurrence: GB)
  Receive Date: 20180320
  Receipt Date: 20220923
  Transmission Date: 20221026
  Serious: Yes (Other)
  Sender: FDA-Public Use
  Company Number: GB-SUN PHARMACEUTICAL INDUSTRIES LTD-2018RR-167183

PATIENT
  Age: 32 Year
  Sex: Female

DRUGS (55)
  1. RISPERIDONE [Suspect]
     Active Substance: RISPERIDONE
     Indication: Hallucination, auditory
     Dosage: UNK
     Route: 065
  2. RISPERIDONE [Suspect]
     Active Substance: RISPERIDONE
     Indication: Schizophrenia
     Dosage: UNK
     Route: 065
  3. RISPERIDONE [Suspect]
     Active Substance: RISPERIDONE
     Indication: Product used for unknown indication
     Dosage: UNK
     Route: 065
  4. RISPERIDONE [Suspect]
     Active Substance: RISPERIDONE
     Indication: Drug ineffective
     Dosage: UNK
     Route: 065
  5. RISPERIDONE [Suspect]
     Active Substance: RISPERIDONE
     Indication: Hallucination, auditory
     Dosage: UNKNOWN
     Route: 065
     Dates: start: 2006, end: 20171205
  6. OLANZAPINE [Suspect]
     Active Substance: OLANZAPINE
     Indication: Hallucination, auditory
     Dosage: DOSAGE FORM: UNKNOWN ()
     Route: 048
  7. OLANZAPINE [Suspect]
     Active Substance: OLANZAPINE
     Indication: Schizophrenia
     Dosage: UNK
     Route: 048
  8. OLANZAPINE [Suspect]
     Active Substance: OLANZAPINE
     Indication: Drug ineffective
     Dosage: UNK
     Route: 048
  9. ZUCLOPENTHIXOL [Suspect]
     Active Substance: ZUCLOPENTHIXOL
     Indication: Hallucination, auditory
     Dosage: UNK
     Route: 065
     Dates: start: 2006, end: 20171205
  10. ZUCLOPENTHIXOL [Suspect]
     Active Substance: ZUCLOPENTHIXOL
     Indication: Hallucination, auditory
  11. ZUCLOPENTHIXOL [Suspect]
     Active Substance: ZUCLOPENTHIXOL
     Indication: Drug ineffective
  12. ZUCLOPENTHIXOL [Suspect]
     Active Substance: ZUCLOPENTHIXOL
     Indication: Schizophrenia
  13. HALOPERIDOL [Suspect]
     Active Substance: HALOPERIDOL
     Indication: Hallucination, auditory
     Dosage: DOSAGE FORM: UNSPECIFIED ()
     Route: 065
  14. HALOPERIDOL [Suspect]
     Active Substance: HALOPERIDOL
     Indication: Product used for unknown indication
     Dosage: DOSAGE FORM: UNSPECIFIED ()
     Route: 065
  15. HALOPERIDOL [Suspect]
     Active Substance: HALOPERIDOL
     Dosage: DOSAGE FORM: UNSPECIFIED ()
     Route: 065
  16. HALOPERIDOL [Suspect]
     Active Substance: HALOPERIDOL
     Dosage: UNK
     Route: 065
     Dates: start: 2019
  17. HALOPERIDOL [Suspect]
     Active Substance: HALOPERIDOL
     Dosage: UNK
     Route: 065
  18. AMISULPRIDE [Suspect]
     Active Substance: AMISULPRIDE
     Indication: Hallucination, auditory
     Dosage: DOSAGE FORM: UNKNOWN ()
     Route: 048
  19. AMISULPRIDE [Suspect]
     Active Substance: AMISULPRIDE
     Dosage: UNK
     Route: 048
     Dates: start: 20050215
  20. AMISULPRIDE [Suspect]
     Active Substance: AMISULPRIDE
     Route: 065
  21. CLOZARIL [Suspect]
     Active Substance: CLOZAPINE
     Indication: Schizophrenia
     Dosage: UNK
     Route: 048
     Dates: start: 2006, end: 20171205
  22. CLOZARIL [Suspect]
     Active Substance: CLOZAPINE
     Indication: Schizoaffective disorder
     Dosage: UNK
     Route: 048
     Dates: start: 20050215, end: 20171205
  23. CLOZARIL [Suspect]
     Active Substance: CLOZAPINE
     Indication: Schizophrenia
     Dosage: UNK
     Route: 048
     Dates: start: 20180205, end: 2019
  24. CLOZARIL [Suspect]
     Active Substance: CLOZAPINE
     Indication: Schizoaffective disorder
     Dosage: UNK
     Route: 048
     Dates: start: 2019
  25. CLOZARIL [Suspect]
     Active Substance: CLOZAPINE
     Dosage: UNK
     Route: 048
     Dates: start: 20150215
  26. CLOZARIL [Suspect]
     Active Substance: CLOZAPINE
     Dosage: UNK
     Route: 048
     Dates: start: 201909
  27. CLOZARIL [Suspect]
     Active Substance: CLOZAPINE
     Dosage: UNK
     Route: 065
  28. CLOZARIL [Suspect]
     Active Substance: CLOZAPINE
     Dosage: UNK
     Route: 065
     Dates: start: 20050215
  29. CLOZARIL [Suspect]
     Active Substance: CLOZAPINE
     Dosage: UNK
     Route: 048
     Dates: start: 20180205, end: 2019
  30. CLOZARIL [Suspect]
     Active Substance: CLOZAPINE
     Dosage: UNK
     Route: 065
     Dates: start: 20180205, end: 2019
  31. CLOZARIL [Suspect]
     Active Substance: CLOZAPINE
     Dosage: UNK
     Route: 065
     Dates: start: 201909
  32. CLOZARIL [Suspect]
     Active Substance: CLOZAPINE
     Dosage: UNK; ;
     Route: 065
     Dates: start: 20180205
  33. QUETIAPINE [Suspect]
     Active Substance: QUETIAPINE
     Indication: Product used for unknown indication
     Dosage: UNK
     Route: 048
  34. ARIPIPRAZOLE [Suspect]
     Active Substance: ARIPIPRAZOLE
     Indication: Product used for unknown indication
     Dosage: UNK
     Route: 065
     Dates: start: 2019
  35. ARIPIPRAZOLE [Suspect]
     Active Substance: ARIPIPRAZOLE
     Indication: Hallucination, auditory
     Dosage: UNK
     Route: 065
     Dates: start: 2019
  36. RISPERDAL [Suspect]
     Active Substance: RISPERIDONE
     Indication: Hallucination, auditory
     Dosage: UNK
     Route: 065
  37. RISPERDAL [Suspect]
     Active Substance: RISPERIDONE
     Indication: Schizophrenia
     Dosage: UNK
     Route: 065
  38. HALDOL [Suspect]
     Active Substance: HALOPERIDOL
     Indication: Hallucination, auditory
     Dosage: UNK
     Route: 065
     Dates: start: 2006, end: 20171205
  39. HALDOL [Suspect]
     Active Substance: HALOPERIDOL
     Indication: Schizophrenia
     Dosage: UNK
     Route: 065
     Dates: start: 2019
  40. HALDOL [Suspect]
     Active Substance: HALOPERIDOL
     Indication: Drug ineffective
     Route: 065
     Dates: start: 2019
  41. HALDOL [Suspect]
     Active Substance: HALOPERIDOL
     Indication: Product used for unknown indication
  42. HALDOL [Suspect]
     Active Substance: HALOPERIDOL
     Indication: Product used for unknown indication
  43. HALDOL [Suspect]
     Active Substance: HALOPERIDOL
     Indication: Schizophrenia
  44. CLOZAPINE [Suspect]
     Active Substance: CLOZAPINE
     Indication: Schizophrenia
     Dosage: UNK
     Route: 048
     Dates: start: 20180205, end: 2019
  45. CLOZAPINE [Suspect]
     Active Substance: CLOZAPINE
     Indication: Schizoaffective disorder
     Dosage: UNK
     Route: 048
     Dates: end: 201909
  46. CLOZAPINE [Suspect]
     Active Substance: CLOZAPINE
     Indication: Hallucination, auditory
     Dosage: UNK
     Route: 048
     Dates: start: 20050205, end: 20171205
  47. CLOZAPINE [Suspect]
     Active Substance: CLOZAPINE
     Dosage: UNKNOWN
     Route: 048
     Dates: start: 20050215, end: 20171205
  48. CLOZAPINE [Suspect]
     Active Substance: CLOZAPINE
     Dosage: UNK
     Route: 048
     Dates: start: 2006, end: 20171205
  49. ZUCLOPENTHIXOL HYDROCHLORIDE [Suspect]
     Active Substance: ZUCLOPENTHIXOL HYDROCHLORIDE
     Indication: Product used for unknown indication
     Route: 065
  50. ARIPIPRAZOLE [Suspect]
     Active Substance: ARIPIPRAZOLE
     Indication: Product used for unknown indication
     Route: 065
  51. QUETIAPINE FUMARATE [Suspect]
     Active Substance: QUETIAPINE FUMARATE
     Indication: Product used for unknown indication
     Route: 065
  52. CLOZARIL [Suspect]
     Active Substance: CLOZAPINE
     Indication: Product used for unknown indication
     Route: 065
  53. RISPERIDONE [Suspect]
     Active Substance: RISPERIDONE
     Indication: Product used for unknown indication
     Route: 065
  54. ABILIFY [Suspect]
     Active Substance: ARIPIPRAZOLE
     Indication: Product used for unknown indication
     Route: 065
  55. OLANZAPINE [Suspect]
     Active Substance: OLANZAPINE
     Indication: Product used for unknown indication
     Route: 065

REACTIONS (36)
  - Suicidal ideation [Unknown]
  - Drug ineffective [Unknown]
  - Schizophrenia [Not Recovered/Not Resolved]
  - Refusal of examination [Unknown]
  - Product use in unapproved indication [Unknown]
  - Eosinophil count decreased [Recovered/Resolved]
  - Schizophrenia [Not Recovered/Not Resolved]
  - Leukopenia [Recovered/Resolved]
  - Neutropenia [Recovered/Resolved]
  - Malaise [Unknown]
  - Drug ineffective [Unknown]
  - Intentional product misuse [Unknown]
  - Drug ineffective [Unknown]
  - Medication error [Unknown]
  - Neutropenia [Recovered/Resolved]
  - Mental impairment [Not Recovered/Not Resolved]
  - Eating disorder [Not Recovered/Not Resolved]
  - Malaise [Not Recovered/Not Resolved]
  - Drug abuse [Unknown]
  - Schizophrenia [Not Recovered/Not Resolved]
  - Schizophrenia [Not Recovered/Not Resolved]
  - Eating disorder [Unknown]
  - Drug ineffective [Unknown]
  - Suicidal ideation [Unknown]
  - Schizophrenia [Not Recovered/Not Resolved]
  - Intentional product misuse [Unknown]
  - Neutropenia [Recovered/Resolved]
  - Drug ineffective [Unknown]
  - Malaise [Unknown]
  - Neutropenia [Recovered/Resolved]
  - Mental impairment [Not Recovered/Not Resolved]
  - Drug abuse [Unknown]
  - Medication error [Unknown]
  - Intentional product misuse [Unknown]
  - Neutropenia [Recovered/Resolved]
  - Product use in unapproved indication [Unknown]

NARRATIVE: CASE EVENT DATE: 20170901
